FAERS Safety Report 6511826-2 (Version None)
Quarter: 2009Q4

REPORT INFORMATION
  Report Type: 
  Country: None (occurrence: None)
  Receive Date: 20091222
  Receipt Date: 20091210
  Transmission Date: 20100525
  Serious: Yes (Other)
  Sender: FDA-Public Use
  Company Number: PHEH2009US17709

PATIENT
  Sex: Female

DRUGS (6)
  1. EXTAVIA [Suspect]
     Indication: MULTIPLE SCLEROSIS
     Dosage: 0.25 MG, QW2
     Route: 058
     Dates: start: 20091025
  2. ZANAFLEX [Concomitant]
     Dosage: UNK, UNK
     Route: 065
  3. BACLOFEN [Concomitant]
     Dosage: UNK, UNK
     Route: 065
  4. NEURONTIN [Concomitant]
     Dosage: 300 MG, QD
     Route: 065
  5. HYDROCHLOROTHIAZIDE [Concomitant]
     Dosage: 12.5 MG, QOD
     Route: 065
  6. DIOVAN [Concomitant]
     Dosage: 80 MG, QD
     Route: 065

REACTIONS (5)
  - COMA [None]
  - FATIGUE [None]
  - PRODUCTIVE COUGH [None]
  - RHINORRHOEA [None]
  - SOMNOLENCE [None]
